FAERS Safety Report 7219278-4 (Version None)
Quarter: 2011Q1

REPORT INFORMATION
  Report Type: 
  Country: None (occurrence: None)
  Receive Date: 20110111
  Receipt Date: 20101210
  Transmission Date: 20110831
  Serious: No
  Sender: FDA-Public Use
  Company Number: US-PFIZER INC-2011003973

PATIENT
  Sex: Male

DRUGS (1)
  1. SUTENT [Suspect]
     Dosage: 37.5 MG, UNK
     Dates: start: 20100201

REACTIONS (6)
  - DYSPNOEA [None]
  - FATIGUE [None]
  - DIZZINESS [None]
  - LETHARGY [None]
  - RASH [None]
  - COLD SWEAT [None]
